FAERS Safety Report 4822987-5 (Version None)
Quarter: 2005Q4

REPORT INFORMATION
  Report Type: 
  Country: None (occurrence: None)
  Receive Date: 20051107
  Receipt Date: 20051107
  Transmission Date: 20060501
  Serious: No
  Sender: FDA-Public Use
  Company Number: None

PATIENT
  Sex: Male
  Weight: 15.6 kg

DRUGS (4)
  1. METRONIDAZOLE [Suspect]
     Indication: APPENDICITIS PERFORATED
     Dosage: 120 MG Q6H IV
     Route: 042
     Dates: start: 20051026, end: 20051102
  2. METRONIDAZOLE [Suspect]
     Indication: PROPHYLAXIS
     Dosage: 120 MG Q6H IV
     Route: 042
     Dates: start: 20051026, end: 20051102
  3. AMPICILLIN AND SULBACTAM [Suspect]
     Indication: APPENDICITIS PERFORATED
     Dosage: 750 MG Q 6H IV
     Route: 042
     Dates: start: 20051026, end: 20051107
  4. AMPICILLIN AND SULBACTAM [Suspect]
     Indication: PROPHYLAXIS
     Dosage: 750 MG Q 6H IV
     Route: 042
     Dates: start: 20051026, end: 20051107

REACTIONS (1)
  - DYSURIA [None]
